FAERS Safety Report 12768572 (Version 1)
Quarter: 2016Q3

REPORT INFORMATION
  Report Type: Spontaneous
  Country: FR (occurrence: FR)
  Receive Date: 20160921
  Receipt Date: 20160921
  Transmission Date: 20161109
  Serious: Yes (Hospitalization)
  Sender: FDA-Public Use
  Company Number: FR-PFIZER INC-2016432739

PATIENT
  Age: 54 Year
  Sex: Male

DRUGS (8)
  1. CARDENSIEL [Concomitant]
     Active Substance: BISOPROLOL FUMARATE
  2. IRBESARTAN. [Suspect]
     Active Substance: IRBESARTAN
     Indication: HYPERTENSION
  3. CORDARONE [Concomitant]
     Active Substance: AMIODARONE HYDROCHLORIDE
  4. SPIRIVA [Concomitant]
     Active Substance: TIOTROPIUM BROMIDE MONOHYDRATE
  5. KARDEGIC [Concomitant]
     Active Substance: ASPIRIN LYSINE
  6. TAHOR [Suspect]
     Active Substance: ATORVASTATIN CALCIUM
     Indication: HYPERCHOLESTEROLAEMIA
     Route: 048
  7. ALDACTONE [Suspect]
     Active Substance: SPIRONOLACTONE
     Indication: HYPERTENSION
     Route: 048
  8. PREVISCAN /00261401/ [Concomitant]
     Active Substance: PENTOXIFYLLINE

REACTIONS (6)
  - Rhabdomyolysis [Recovering/Resolving]
  - Hyperthermia [Recovering/Resolving]
  - Malaise [Recovered/Resolved]
  - Anuria [Recovering/Resolving]
  - Myalgia [Recovering/Resolving]
  - Acute kidney injury [Recovering/Resolving]

NARRATIVE: CASE EVENT DATE: 20160826
